FAERS Safety Report 8538429-2 (Version None)
Quarter: 2012Q3

REPORT INFORMATION
  Report Type: 
  Country: None (occurrence: None)
  Receive Date: 20120712
  Receipt Date: 20120703
  Transmission Date: 20120928
  Serious: Yes (Death)
  Sender: FDA-Public Use
  Company Number: FK201201831

PATIENT
  Age: 34 Year
  Sex: Female

DRUGS (2)
  1. DIPYRONE INJ [Suspect]
  2. CEFTRIAXONE [Suspect]
     Indication: TRACHEOBRONCHITIS

REACTIONS (22)
  - PYREXIA [None]
  - AGITATION [None]
  - CONVULSION [None]
  - SHOCK [None]
  - RENAL FAILURE ACUTE [None]
  - ORAL DISORDER [None]
  - OLIGURIA [None]
  - RESPIRATORY DISTRESS [None]
  - PULMONARY NECROSIS [None]
  - POSTPARTUM SEPSIS [None]
  - GENERAL PHYSICAL HEALTH DETERIORATION [None]
  - AGRANULOCYTOSIS [None]
  - PALLOR [None]
  - DEPRESSED LEVEL OF CONSCIOUSNESS [None]
  - BRONCHOPNEUMONIA [None]
  - ORAL CANDIDIASIS [None]
  - COUGH [None]
  - OXYGEN SATURATION DECREASED [None]
  - DYSPNOEA [None]
  - ODYNOPHAGIA [None]
  - CARDIAC ARREST [None]
  - METABOLIC ACIDOSIS [None]
